FAERS Safety Report 19226015 (Version 1)
Quarter: 2021Q2

REPORT INFORMATION
  Report Type: Other
  Country: US (occurrence: US)
  Receive Date: 20210506
  Receipt Date: 20210506
  Transmission Date: 20210717
  Serious: Yes (Hospitalization)
  Sender: FDA-Public Use
  Company Number: US-NEUROCRINE BIOSCIENCES INC.-2021NBI02100

PATIENT

DRUGS (5)
  1. REXULTI [Concomitant]
     Active Substance: BREXPIPRAZOLE
     Indication: ANXIETY
     Dosage: 0.5 MILLIGRAM, QD
     Route: 048
  2. REXULTI [Concomitant]
     Active Substance: BREXPIPRAZOLE
     Indication: DEPRESSION
  3. TRILEPTAL [Concomitant]
     Active Substance: OXCARBAZEPINE
     Indication: AFFECTIVE DISORDER
     Dosage: 450 MILLIGRAM, BID
     Route: 048
  4. MINIPRESS [Concomitant]
     Active Substance: PRAZOSIN HYDROCHLORIDE
     Indication: NIGHTMARE
     Dosage: 1 MILLIGRAM, QHS
     Route: 048
  5. INGREZZA [Suspect]
     Active Substance: VALBENAZINE
     Indication: TARDIVE DYSKINESIA
     Dosage: 80 MILLIGRAM, QD
     Route: 048
     Dates: start: 20210212

REACTIONS (1)
  - Anxiety [Unknown]

NARRATIVE: CASE EVENT DATE: 2021
